FAERS Safety Report 5279397-9 (Version None)
Quarter: 2007Q1

REPORT INFORMATION
  Report Type: 
  Country: None (occurrence: None)
  Receive Date: 20070322
  Receipt Date: 20070308
  Transmission Date: 20070707
  Serious: Yes (Disabling)
  Sender: FDA-Public Use
  Company Number: SU-2007-006014

PATIENT
  Sex: Female

DRUGS (6)
  1. OLMETEC [Suspect]
     Dosage: 20 MG UNK PO
     Route: 048
     Dates: start: 20041101
  2. CADUET [Suspect]
     Dosage: 5.1 MG UNK PO
     Route: 048
     Dates: start: 20030101
  3. ALDACTONE [Suspect]
     Dosage: MG  PO
     Route: 048
     Dates: start: 20030101
  4. DIABINESE [Concomitant]
  5. NORVASC [Concomitant]
  6. INSULIN [Concomitant]

REACTIONS (3)
  - DYSPNOEA [None]
  - FATIGUE [None]
  - PALPITATIONS [None]
